FAERS Safety Report 26097799 (Version 1)
Quarter: 2025Q4

REPORT INFORMATION
  Report Type: Spontaneous
  Country: US (occurrence: US)
  Receive Date: 20251127
  Receipt Date: 20251127
  Transmission Date: 20260118
  Serious: No
  Sender: STALLERGENES
  Company Number: US-STALCOR-2025-AER-02645

PATIENT
  Age: 6 Year
  Sex: Male

DRUGS (1)
  1. PALFORZIA [Suspect]
     Active Substance: PEANUT
     Indication: Food allergy
     Dosage: REACTIVE DOSE AT 300MG, A 30-DAY SUPPLY DISPENSED ON AN UNKNOWN DATE.
     Route: 048

REACTIONS (1)
  - COVID-19 [Recovering/Resolving]
